FAERS Safety Report 5048356-3 (Version None)
Quarter: 2006Q3

REPORT INFORMATION
  Report Type: 
  Country: None (occurrence: None)
  Receive Date: 20060711
  Receipt Date: 20060322
  Transmission Date: 20061208
  Serious: Yes (Hospitalization, Other)
  Sender: FDA-Public Use
  Company Number: FR-ABBOTT-06P-056-0328853-00

PATIENT
  Sex: Female

DRUGS (14)
  1. HUMIRA [Suspect]
     Indication: RHEUMATOID ARTHRITIS
     Route: 058
     Dates: start: 20040104, end: 20051115
  2. COMMERCIAL HUMIRA [Concomitant]
     Indication: RHEUMATOID ARTHRITIS
     Route: 058
     Dates: start: 20031110
  3. LEFLUNOMIDE [Concomitant]
     Indication: RHEUMATOID ARTHRITIS
     Dates: start: 20030301, end: 20051101
  4. METHYLPREDNISOLONE [Concomitant]
     Indication: RHEUMATOID ARTHRITIS
     Dates: start: 20050601, end: 20051207
  5. DICLOFENAC [Concomitant]
     Indication: RHEUMATOID ARTHRITIS
     Dates: start: 20050601
  6. MISOPROSTOL [Concomitant]
     Indication: RHEUMATOID ARTHRITIS
     Dates: start: 20050601
  7. TIANEPTINE [Concomitant]
     Indication: HYPERTENSION
  8. LERCANIDIPINE HYDROCHLORIDE [Concomitant]
     Indication: HYPERTENSION
  9. ZOPICLONE [Concomitant]
     Indication: INSOMNIA
  10. BROMAZEPAM [Concomitant]
     Indication: ANXIETY
  11. IRBESARTAN [Concomitant]
     Indication: HYPERTENSION
     Dates: start: 19960101
  12. RILMENIDINE [Concomitant]
     Indication: HYPERTENSION
  13. OMEPRAZOLE [Concomitant]
     Indication: GASTROOESOPHAGEAL REFLUX DISEASE
     Dates: start: 19990101
  14. IZOLOX [Concomitant]
     Indication: PYREXIA
     Dates: start: 20051118, end: 20051119

REACTIONS (4)
  - DIARRHOEA [None]
  - LUNG INFECTION [None]
  - PHLEBITIS [None]
  - PULMONARY EMBOLISM [None]
